FAERS Safety Report 19974847 (Version 1)
Quarter: 2021Q4

REPORT INFORMATION
  Report Type: Spontaneous
  Country: US (occurrence: US)
  Receive Date: 20211020
  Receipt Date: 20211020
  Transmission Date: 20220303
  Serious: No
  Sender: FDA-Public Use
  Company Number: US-ALLERGAN-2041472US

PATIENT
  Sex: Female

DRUGS (2)
  1. LINZESS [Interacting]
     Active Substance: LINACLOTIDE
     Indication: Product used for unknown indication
  2. IMBRUVICA [Interacting]
     Active Substance: IBRUTINIB
     Indication: Chronic lymphocytic leukaemia
     Dosage: 420 MG, QD
     Dates: start: 20200208

REACTIONS (2)
  - Malaise [Not Recovered/Not Resolved]
  - Drug interaction [Unknown]
